FAERS Safety Report 5625778-0 (Version None)
Quarter: 2008Q1

REPORT INFORMATION
  Report Type: 
  Country: None (occurrence: None)
  Receive Date: 20080212
  Receipt Date: 20080212
  Transmission Date: 20080703
  Serious: Yes (Life-Threatening)
  Sender: FDA-Public Use
  Company Number: None

PATIENT
  Age: 62 Year
  Sex: Male
  Weight: 74.3899 kg

DRUGS (3)
  1. MORPHINE [Suspect]
     Indication: MYOTONIA CONGENITA
     Dosage: 40MG/ML IT
     Route: 037
     Dates: start: 20071228, end: 20080118
  2. BUPIVACAINE [Suspect]
     Indication: MYOTONIA CONGENITA
     Dosage: 2% 20ML IT
     Route: 037
     Dates: start: 20071228, end: 20080118
  3. CLONIDINE [Suspect]
     Indication: MYOTONIA CONGENITA
     Dosage: 1200MCG/ML IT
     Route: 037
     Dates: start: 20071228, end: 20080118

REACTIONS (2)
  - MEDICATION ERROR [None]
  - OVERDOSE [None]
